FAERS Safety Report 7134073-2 (Version None)
Quarter: 2010Q4

REPORT INFORMATION
  Report Type: 
  Country: None (occurrence: None)
  Receive Date: 20101117
  Receipt Date: 20100625
  Transmission Date: 20110411
  Serious: Yes (Hospitalization)
  Sender: FDA-Public Use
  Company Number: 021816

PATIENT
  Age: 18 Year
  Sex: Male

DRUGS (2)
  1. METHYLPHENIDATE HCL [Suspect]
     Indication: MAJOR DEPRESSION
     Dosage: (10 MG QD)
     Dates: start: 20090101, end: 20090101
  2. PAROXETINE HCL [Suspect]
     Indication: MAJOR DEPRESSION
     Dosage: (20 MG QD)
     Dates: start: 20090101, end: 20090101

REACTIONS (17)
  - AGGRESSION [None]
  - CONFUSIONAL STATE [None]
  - DELUSION OF GRANDEUR [None]
  - DRUG INTERACTION [None]
  - ELEVATED MOOD [None]
  - HYPERHIDROSIS [None]
  - LIBIDO INCREASED [None]
  - MANIA [None]
  - MUSCLE RIGIDITY [None]
  - MYDRIASIS [None]
  - MYOCLONUS [None]
  - NO THERAPEUTIC RESPONSE [None]
  - PSYCHOTIC DISORDER [None]
  - SEROTONIN SYNDROME [None]
  - SLEEP DISORDER [None]
  - TREATMENT NONCOMPLIANCE [None]
  - TREMOR [None]
